FAERS Safety Report 4781422-6 (Version None)
Quarter: 2005Q3

REPORT INFORMATION
  Report Type: 
  Country: None (occurrence: None)
  Receive Date: 20050928
  Receipt Date: 20050922
  Transmission Date: 20060218
  Serious: Yes (Hospitalization)
  Sender: FDA-Public Use
  Company Number: PHBS2005GR13914

PATIENT
  Age: 73 Year
  Sex: Female

DRUGS (1)
  1. TRILEPTAL [Suspect]
     Dosage: 1200 MG/D
     Route: 048

REACTIONS (2)
  - ATRIOVENTRICULAR BLOCK [None]
  - HEART RATE DECREASED [None]
